FAERS Safety Report 23790253 (Version 1)
Quarter: 2024Q2

REPORT INFORMATION
  Report Type: Other
  Country: US (occurrence: None)
  Receive Date: 20240426
  Receipt Date: 20240426
  Transmission Date: 20240715
  Serious: Yes (Other)
  Sender: FDA-Public Use
  Company Number: US-ROCHE-3549219

PATIENT
  Age: 81 Year
  Sex: Male

DRUGS (1)
  1. ESBRIET [Suspect]
     Active Substance: PIRFENIDONE
     Indication: Pneumonia
     Route: 048

REACTIONS (1)
  - Neoplasm malignant [Unknown]
